FAERS Safety Report 17015112 (Version 1)
Quarter: 2019Q4

REPORT INFORMATION
  Report Type: Spontaneous
  Country: US (occurrence: US)
  Receive Date: 20191111
  Receipt Date: 20191111
  Transmission Date: 20200122
  Serious: Yes (Other)
  Sender: FDA-Public Use
  Company Number: US-BAXTER-2019BAX022348

PATIENT
  Age: 57 Year
  Sex: Male

DRUGS (4)
  1. ZOSYN [Suspect]
     Active Substance: PIPERACILLIN SODIUM\TAZOBACTAM SODIUM
     Indication: EVIDENCE BASED TREATMENT
     Route: 065
  2. VANCOMYCIN INJECTION, USP [Suspect]
     Active Substance: VANCOMYCIN
     Indication: EVIDENCE BASED TREATMENT
     Route: 065
  3. AZTREONAM. [Suspect]
     Active Substance: AZTREONAM
     Indication: EVIDENCE BASED TREATMENT
     Route: 065
  4. CEFTRIAXONE AND DEXTROSE [Suspect]
     Active Substance: CEFTRIAXONE SODIUM
     Indication: EVIDENCE BASED TREATMENT
     Route: 065

REACTIONS (1)
  - Tubulointerstitial nephritis [Recovering/Resolving]
